FAERS Safety Report 7422037-0 (Version None)
Quarter: 2011Q2

REPORT INFORMATION
  Report Type: 
  Country: None (occurrence: None)
  Receive Date: 20110418
  Receipt Date: 20110407
  Transmission Date: 20111010
  Serious: Yes (Other)
  Sender: FDA-Public Use
  Company Number: US-CEPHALON-2009009942

PATIENT
  Sex: Male
  Weight: 75 kg

DRUGS (5)
  1. PROVIGIL [Suspect]
     Dates: start: 20090822, end: 20090824
  2. ZANTAC [Concomitant]
     Indication: GASTROOESOPHAGEAL REFLUX DISEASE
     Route: 048
  3. LOVENOX [Concomitant]
     Indication: ANTICOAGULANT THERAPY
     Route: 058
     Dates: start: 20090814
  4. PROVIGIL [Suspect]
     Indication: SOMNOLENCE
     Dates: start: 20090822, end: 20090822
  5. UNKNOWN LAXATIVE [Concomitant]

REACTIONS (6)
  - IRRITABILITY [None]
  - RASH [None]
  - PANIC ATTACK [None]
  - PRURITUS [None]
  - AGITATION [None]
  - CONFUSIONAL STATE [None]
